FAERS Safety Report 8530188 (Version 7)
Quarter: 2013Q1

REPORT INFORMATION
  Report Type: Spontaneous
  Country: US (occurrence: US)
  Receive Date: 20120425
  Receipt Date: 20130114
  Transmission Date: 20140127
  Serious: Yes (Hospitalization, Other)
  Sender: FDA-Public Use
  Company Number: US-ASTRAZENECA-2012SE24989

PATIENT
  Age: 75 Year
  Sex: Female

DRUGS (1)
  1. NEXIUM [Suspect]
     Route: 048

REACTIONS (8)
  - Hernia [Unknown]
  - Thyroid cancer [Unknown]
  - Oesophageal disorder [Unknown]
  - Gastric perforation [Unknown]
  - Chest pain [Unknown]
  - Regurgitation [Unknown]
  - Gastrooesophageal reflux disease [Unknown]
  - Drug dose omission [Unknown]
